FAERS Safety Report 21208658 (Version 1)
Quarter: 2022Q3

REPORT INFORMATION
  Report Type: Spontaneous
  Country: US (occurrence: None)
  Receive Date: 20220811
  Receipt Date: 20220811
  Transmission Date: 20221026
  Serious: Yes (Death, Hospitalization, Disabling)
  Sender: FDA-Public Use
  Company Number: None

PATIENT
  Age: 56 Year
  Sex: Male

DRUGS (15)
  1. VELTASSA [Suspect]
     Active Substance: PATIROMER
     Indication: Hyperkalaemia
     Dosage: 16.8 GRAM  SU, TU, TH, SAT BY MOUTH?
     Route: 048
     Dates: start: 20211227, end: 20220809
  2. ASPIRIN [Concomitant]
     Active Substance: ASPIRIN
  3. nephrovite rx [Concomitant]
  4. TORSEMIDE [Concomitant]
     Active Substance: TORSEMIDE
  5. VITAMIN D [Concomitant]
     Active Substance: VITAMIN D NOS
  6. MIRALAX [Concomitant]
     Active Substance: POLYETHYLENE GLYCOL 3350
  7. DOCUSATE [Concomitant]
     Active Substance: DOCUSATE
  8. atyorvastatin [Concomitant]
  9. RANOLAZINE [Concomitant]
     Active Substance: RANOLAZINE
  10. NITROGLYCERIN [Concomitant]
     Active Substance: NITROGLYCERIN
  11. LORAZEPAM [Concomitant]
     Active Substance: LORAZEPAM
  12. SEVELAMER [Concomitant]
     Active Substance: SEVELAMER
  13. TRIAMCINOLONE [Concomitant]
     Active Substance: TRIAMCINOLONE
  14. CARVEDILOL [Concomitant]
     Active Substance: CARVEDILOL
  15. TOBRAMYCIN [Concomitant]
     Active Substance: TOBRAMYCIN

REACTIONS (1)
  - Death [None]

NARRATIVE: CASE EVENT DATE: 20220809
